FAERS Safety Report 10245020 (Version 2)
Quarter: 2014Q3

REPORT INFORMATION
  Report Type: Spontaneous
  Country: US (occurrence: US)
  Receive Date: 20140618
  Receipt Date: 20140912
  Transmission Date: 20150326
  Serious: No
  Sender: FDA-Public Use
  Company Number: US-GALDERMA-US14001625

PATIENT
  Age: 44 Year
  Sex: Male

DRUGS (13)
  1. MIRVASO [Suspect]
     Active Substance: BRIMONIDINE TARTRATE
     Indication: FLUSHING
     Dosage: 0.33%
     Route: 061
     Dates: start: 201404, end: 20140425
  2. TRETINOIN. [Concomitant]
     Active Substance: TRETINOIN
     Dosage: 0.025%
     Route: 061
  3. METROGEL [Concomitant]
     Active Substance: METRONIDAZOLE
     Indication: ROSACEA
     Dosage: 1%
     Route: 061
     Dates: start: 2012, end: 2013
  4. CERAVE MOISTURIZING CREAM [Concomitant]
     Indication: DRY SKIN PROPHYLAXIS
     Route: 061
  5. ELTA MD CLEAR SUNSCREEN [Concomitant]
     Indication: PROPHYLAXIS AGAINST SOLAR RADIATION
     Route: 061
  6. METROGEL [Concomitant]
     Active Substance: METRONIDAZOLE
     Indication: FLUSHING
  7. DOXYCYCLINE. [Concomitant]
     Active Substance: DOXYCYCLINE
     Indication: FLUSHING
  8. MIRVASO [Suspect]
     Active Substance: BRIMONIDINE TARTRATE
     Indication: ROSACEA
     Dosage: 0.33%
     Route: 061
     Dates: start: 20131203, end: 201404
  9. DOXYCYCLINE. [Concomitant]
     Active Substance: DOXYCYCLINE
     Indication: ROSACEA
     Dosage: 50 MG
     Route: 048
  10. VANICREAM HYDRATING LOTION [Concomitant]
     Indication: THERAPEUTIC SKIN CARE TOPICAL
     Route: 061
  11. CETAPHIL [Concomitant]
     Active Substance: AVOBENZONE\OCTOCRYLENE\TRICLOSAN
     Indication: THERAPEUTIC SKIN CARE TOPICAL
     Route: 061
  12. NEUTROGEN UNSCENTED MOISTURIZER [Concomitant]
     Indication: DRY SKIN PROPHYLAXIS
     Route: 061
  13. FINACEA [Concomitant]
     Active Substance: AZELAIC ACID
     Route: 061

REACTIONS (9)
  - Skin warm [Recovered/Resolved]
  - Rash macular [Recovered/Resolved]
  - Drug effect decreased [Unknown]
  - Off label use [Recovered/Resolved]
  - Rebound effect [Recovered/Resolved]
  - Erythema [Recovered/Resolved]
  - Pallor [Unknown]
  - Condition aggravated [Recovered/Resolved]
  - Inappropriate schedule of drug administration [Recovered/Resolved]

NARRATIVE: CASE EVENT DATE: 201312
